FAERS Safety Report 7279301-8 (Version None)
Quarter: 2011Q1

REPORT INFORMATION
  Report Type: 
  Country: None (occurrence: None)
  Receive Date: 20110207
  Receipt Date: 20110128
  Transmission Date: 20110831
  Serious: Yes (Hospitalization, Other)
  Sender: FDA-Public Use
  Company Number: US-RB-020289-11

PATIENT
  Age: 61 Year
  Sex: Male

DRUGS (1)
  1. SUBOXONE [Suspect]
     Indication: PRODUCT USED FOR UNKNOWN INDICATION
     Dosage: DOSING INFORMATION UNKNOWN
     Route: 065

REACTIONS (12)
  - MITRAL VALVE DISEASE [None]
  - HYPOAESTHESIA [None]
  - LETHARGY [None]
  - MUSCULAR WEAKNESS [None]
  - INFLUENZA [None]
  - INTENTIONAL DRUG MISUSE [None]
  - BACK PAIN [None]
  - TRANSIENT ISCHAEMIC ATTACK [None]
  - PAIN [None]
  - CEREBROVASCULAR ACCIDENT [None]
  - NERVOUSNESS [None]
  - NASOPHARYNGITIS [None]
